FAERS Safety Report 6671632-5 (Version None)
Quarter: 2010Q2

REPORT INFORMATION
  Report Type: 
  Country: None (occurrence: None)
  Receive Date: 20100406
  Receipt Date: 20100406
  Transmission Date: 20101027
  Serious: Yes (Other)
  Sender: FDA-Public Use
  Company Number: None

PATIENT
  Sex: Male

DRUGS (1)
  1. PROMACTA [Suspect]
     Dosage: 75MG DAILY PO
     Route: 048
     Dates: start: 20090825, end: 20100226

REACTIONS (1)
  - PLATELET COUNT DECREASED [None]
